FAERS Safety Report 4356073-8 (Version None)
Quarter: 2004Q2

REPORT INFORMATION
  Report Type: 
  Country: None (occurrence: None)
  Receive Date: 20040507
  Receipt Date: 20040507
  Transmission Date: 20050107
  Serious: Yes (Hospitalization)
  Sender: FDA-Public Use
  Company Number: None

PATIENT
  Age: 78 Year
  Sex: Male
  Weight: 46.1 kg

DRUGS (13)
  1. IBUPROFEN [Suspect]
  2. MULTI-VITAMIN [Concomitant]
  3. ASPIRIN [Suspect]
  4. NITROGLYCERIN [Concomitant]
  5. LATANOPROST [Concomitant]
  6. ACETAMINOPHEN [Concomitant]
  7. BRIMONIDINE OPTH SOLUTION [Concomitant]
  8. DORZOLAMIDE/TIMOLOL [Concomitant]
  9. ALBUTEROL ORAL INHALER [Concomitant]
  10. DILTIAZEM [Concomitant]
  11. FLUNISOLIDE [Concomitant]
  12. IPRATROPIUM/ALBUTEROL [Concomitant]
  13. THEOPHYLLINE [Concomitant]

REACTIONS (1)
  - MELAENA [None]
